FAERS Safety Report 23231296 (Version 1)
Quarter: 2023Q4

REPORT INFORMATION
  Report Type: Spontaneous
  Country: JP (occurrence: JP)
  Receive Date: 20231127
  Receipt Date: 20231127
  Transmission Date: 20240110
  Serious: Yes (Other)
  Sender: FDA-Public Use
  Company Number: JP-STRIDES ARCOLAB LIMITED-2023SP017524

PATIENT
  Age: 71 Year
  Sex: Male

DRUGS (7)
  1. PREDNISOLONE [Interacting]
     Active Substance: PREDNISOLONE
     Indication: Pemphigoid
     Dosage: 20 MILLIGRAM
     Route: 065
  2. PREDNISOLONE [Interacting]
     Active Substance: PREDNISOLONE
     Dosage: 50 MILLIGRAM
     Route: 065
  3. PHENOBARBITAL [Interacting]
     Active Substance: PHENOBARBITAL
     Indication: Product used for unknown indication
     Dosage: UNK
     Route: 065
  4. BETAMETHASONE [Interacting]
     Active Substance: BETAMETHASONE\BETAMETHASONE DIPROPIONATE
     Indication: Pemphigoid
     Dosage: UNK
     Route: 065
  5. METHYLPREDNISOLONE [Interacting]
     Active Substance: METHYLPREDNISOLONE
     Indication: Pemphigoid
     Dosage: UNK
     Route: 065
  6. PHENYTOIN [Interacting]
     Active Substance: PHENYTOIN
     Indication: Product used for unknown indication
     Dosage: UNK
     Route: 065
  7. HUMAN IMMUNOGLOBULIN G [Suspect]
     Active Substance: HUMAN IMMUNOGLOBULIN G
     Indication: Pemphigoid
     Dosage: UNK
     Route: 065

REACTIONS (2)
  - Drug interaction [Unknown]
  - Drug ineffective [Unknown]
